FAERS Safety Report 6173623-X (Version None)
Quarter: 2009Q2

REPORT INFORMATION
  Report Type: 
  Country: None (occurrence: None)
  Receive Date: 20090429
  Receipt Date: 20090429
  Transmission Date: 20091009
  Serious: Yes (Other)
  Sender: FDA-Public Use
  Company Number: None

PATIENT
  Age: 57 Year
  Sex: Female
  Weight: 72.5755 kg

DRUGS (8)
  1. PRISTIQ [Suspect]
     Indication: DEATH OF RELATIVE
     Dosage: 100 MG 1/DAY ORAL 047
     Route: 048
     Dates: start: 20090322, end: 20090414
  2. PRISTIQ [Suspect]
     Indication: DEPRESSION
     Dosage: 100 MG 1/DAY ORAL 047
     Route: 048
     Dates: start: 20090322, end: 20090414
  3. TRIAMTERENE AND HYDROCHLOROTHIAZIDE [Concomitant]
  4. LISINOPRIL [Concomitant]
  5. TRICOR [Concomitant]
  6. CRESTOR [Concomitant]
  7. ZETIA [Concomitant]
  8. GLUCOPHAGE [Concomitant]

REACTIONS (3)
  - CONDITION AGGRAVATED [None]
  - DEPRESSION [None]
  - PRODUCT QUALITY ISSUE [None]
